FAERS Safety Report 5802976-4 (Version None)
Quarter: 2008Q2

REPORT INFORMATION
  Report Type: 
  Country: None (occurrence: None)
  Receive Date: 20080626
  Receipt Date: 20080228
  Transmission Date: 20081010
  Serious: No
  Sender: FDA-Public Use
  Company Number: US-CVT-080016

PATIENT
  Age: 75 Year
  Sex: Male

DRUGS (5)
  1. RANEXA [Suspect]
     Indication: ANGINA PECTORIS
     Dosage: 500 MG, BID, ORAL
     Route: 048
     Dates: start: 20060101
  2. UNIVASC [Concomitant]
  3. ALLOPURINOL [Concomitant]
  4. PLAVIX [Concomitant]
  5. ASPIRIN [Concomitant]

REACTIONS (1)
  - LIBIDO INCREASED [None]
